FAERS Safety Report 8017753 (Version 6)
Quarter: 2013Q4

REPORT INFORMATION
  Report Type: Spontaneous
  Country: JP (occurrence: JP)
  Receive Date: 20110630
  Receipt Date: 20131202
  Transmission Date: 20140711
  Serious: Yes (Other)
  Sender: FDA-Public Use
  Company Number: PHHY2011JP33081

PATIENT
  Age: 49 Year
  Sex: Male
  Weight: 66 kg

DRUGS (3)
  1. SANDOSTATIN LAR [Suspect]
     Indication: CARCINOID TUMOUR OF THE GASTROINTESTINAL TRACT
     Dosage: 30 MG, QMO
     Route: 030
     Dates: start: 20100826
  2. SANDOSTATIN LAR [Suspect]
     Dosage: 30 MG,
     Route: 030
     Dates: start: 20110506
  3. SANDOSTATIN LAR [Suspect]
     Dosage: 30 MG, UNK
     Route: 042
     Dates: start: 20110531

REACTIONS (5)
  - Injection site necrosis [Recovered/Resolved]
  - Injection site mass [Recovered/Resolved]
  - Injection site induration [Not Recovered/Not Resolved]
  - Fat necrosis [Unknown]
  - Panniculitis [Unknown]
